FAERS Safety Report 21170732 (Version 1)
Quarter: 2022Q3

REPORT INFORMATION
  Report Type: Spontaneous
  Country: US (occurrence: None)
  Receive Date: 20220803
  Receipt Date: 20220803
  Transmission Date: 20221027
  Serious: No
  Sender: FDA-Public Use
  Company Number: None

PATIENT
  Age: 80 Year
  Sex: Female

DRUGS (1)
  1. KEYTRUDA [Suspect]
     Active Substance: PEMBROLIZUMAB
     Indication: Endometrial neoplasm
     Dosage: 200MG  EVERY 21 DAYS IV?
     Route: 042
     Dates: start: 20220328

REACTIONS (1)
  - Constipation [None]

NARRATIVE: CASE EVENT DATE: 20220711
